FAERS Safety Report 22041116 (Version 1)
Quarter: 2023Q1

REPORT INFORMATION
  Report Type: Report from Study
  Country: US (occurrence: US)
  Receive Date: 20230227
  Receipt Date: 20230227
  Transmission Date: 20230418
  Serious: Yes (Other)
  Sender: FDA-Public Use
  Company Number: US-PFIZER INC-PV202300034115

PATIENT

DRUGS (2)
  1. VORICONAZOLE [Suspect]
     Active Substance: VORICONAZOLE
     Indication: Antifungal prophylaxis
     Dosage: UNK
  2. GILTERITINIB [Concomitant]
     Active Substance: GILTERITINIB
     Indication: Acute leukaemia
     Dosage: UNK

REACTIONS (2)
  - Treatment noncompliance [Unknown]
  - Bronchopulmonary aspergillosis [Unknown]
